FAERS Safety Report 13663175 (Version 1)
Quarter: 2017Q2

REPORT INFORMATION
  Report Type: Spontaneous
  Country: FR (occurrence: FR)
  Receive Date: 20170619
  Receipt Date: 20170619
  Transmission Date: 20170830
  Serious: Yes (Hospitalization, Other)
  Sender: FDA-Public Use
  Company Number: FR-ROCHE-1927062

PATIENT
  Sex: Female
  Weight: 76 kg

DRUGS (2)
  1. LYSANXIA [Concomitant]
     Active Substance: PRAZEPAM
  2. RIVOTRIL [Suspect]
     Active Substance: CLONAZEPAM
     Indication: EPILEPSY
     Route: 065
     Dates: start: 1984, end: 20141010

REACTIONS (34)
  - Ill-defined disorder [Unknown]
  - Fatigue [Recovering/Resolving]
  - Motor dysfunction [Not Recovered/Not Resolved]
  - Pain [Unknown]
  - Nervousness [Recovering/Resolving]
  - Withdrawal syndrome [Recovered/Resolved]
  - Disorientation [Recovering/Resolving]
  - Dizziness [Recovering/Resolving]
  - Hyperacusis [Recovered/Resolved]
  - Anxiety [Recovered/Resolved]
  - Nystagmus [Recovering/Resolving]
  - Hypotonia [Not Recovered/Not Resolved]
  - Alopecia [Recovered/Resolved]
  - Epilepsy [Not Recovered/Not Resolved]
  - Nightmare [Recovering/Resolving]
  - Abnormal behaviour [Recovered/Resolved]
  - Muscle contractions involuntary [Unknown]
  - Muscular weakness [Unknown]
  - Diplopia [Recovering/Resolving]
  - Vision blurred [Recovering/Resolving]
  - Asthenia [Not Recovered/Not Resolved]
  - Hostility [Recovering/Resolving]
  - Aggression [Recovering/Resolving]
  - Agitation [Recovering/Resolving]
  - Visual field defect [Not Recovered/Not Resolved]
  - Headache [Recovered/Resolved]
  - Irritability [Recovering/Resolving]
  - Drug-induced liver injury [Unknown]
  - Confusional state [Recovered/Resolved]
  - Anterograde amnesia [Recovered/Resolved]
  - Pruritus generalised [Not Recovered/Not Resolved]
  - Abnormal dreams [Recovered/Resolved]
  - Libido decreased [Not Recovered/Not Resolved]
  - Sleep disorder [Recovering/Resolving]
